FAERS Safety Report 12345420 (Version 1)
Quarter: 2016Q2

REPORT INFORMATION
  Report Type: Report from Study
  Country: US (occurrence: US)
  Receive Date: 20160508
  Receipt Date: 20160508
  Transmission Date: 20160815
  Serious: No
  Sender: FDA-Public Use
  Company Number: US-AMGEN-USASL2016057466

PATIENT
  Age: 65 Year
  Sex: Female

DRUGS (1)
  1. ENBREL [Suspect]
     Active Substance: ETANERCEPT
     Indication: ANKYLOSING SPONDYLITIS
     Dosage: 50 MG, QWK
     Route: 065
     Dates: start: 20160323

REACTIONS (3)
  - Injection site paraesthesia [Not Recovered/Not Resolved]
  - Pain in extremity [Unknown]
  - Foot fracture [Unknown]

NARRATIVE: CASE EVENT DATE: 2016
